FAERS Safety Report 4509624-4 (Version None)
Quarter: 2004Q4

REPORT INFORMATION
  Report Type: 
  Country: None (occurrence: None)
  Receive Date: 20041124
  Receipt Date: 20030828
  Transmission Date: 20050328
  Serious: Yes (Other)
  Sender: FDA-Public Use
  Company Number: US-BRISTOL-MYERS SQUIBB COMPANY-12368460

PATIENT
  Age: 67 Year
  Sex: Female
  Weight: 83 kg

DRUGS (6)
  1. AVALIDE [Suspect]
     Indication: HYPERTENSION
     Dosage: DOSAGE TAKEN: 150/12.5 MG
     Route: 048
  2. ATENOLOL [Concomitant]
  3. ZETIA [Concomitant]
  4. LIPITOR [Concomitant]
  5. ASPIRIN [Concomitant]
  6. MULTIVITAMIN [Concomitant]

REACTIONS (3)
  - GENERALISED OEDEMA [None]
  - HYPERTENSION [None]
  - PAIN IN EXTREMITY [None]
